FAERS Safety Report 6388786-0 (Version None)
Quarter: 2009Q4

REPORT INFORMATION
  Report Type: 
  Country: None (occurrence: None)
  Receive Date: 20091002
  Receipt Date: 20091002
  Transmission Date: 20100525
  Serious: Yes (Hospitalization)
  Sender: FDA-Public Use
  Company Number: None

PATIENT
  Age: 81 Year
  Sex: Male

DRUGS (4)
  1. TERAZOSIN HCL [Suspect]
     Indication: BENIGN PROSTATIC HYPERPLASIA
     Dosage: 3 MG HS PO
     Route: 048
     Dates: start: 20080820, end: 20081230
  2. TERAZOSIN HCL [Suspect]
     Indication: HYPERTENSION
     Dosage: 3 MG HS PO
     Route: 048
     Dates: start: 20080820, end: 20081230
  3. LISINOPRIL [Suspect]
     Indication: DIABETES MELLITUS
     Dosage: 20 MG EVERY DAY PO
     Route: 048
     Dates: start: 20080807
  4. LISINOPRIL [Suspect]
     Indication: HYPERTENSION
     Dosage: 20 MG EVERY DAY PO
     Route: 048
     Dates: start: 20080807

REACTIONS (3)
  - FALL [None]
  - HYPOTENSION [None]
  - ORTHOSTATIC HYPOTENSION [None]
